FAERS Safety Report 9898387 (Version 1)
Quarter: 2014Q1

REPORT INFORMATION
  Report Type: Spontaneous
  Country: FR (occurrence: FR)
  Receive Date: 20140214
  Receipt Date: 20140214
  Transmission Date: 20141002
  Serious: Yes (Death, Hospitalization)
  Sender: FDA-Public Use
  Company Number: FR-ELI_LILLY_AND_COMPANY-FR201402002546

PATIENT
  Age: 80 Year
  Sex: Male

DRUGS (4)
  1. ALIMTA [Suspect]
     Indication: MESOTHELIOMA
     Dosage: 870 MG, CYCLICAL
     Route: 042
  2. CARBOPLATIN [Concomitant]
     Indication: MESOTHELIOMA
     Dosage: UNK, CYCLICAL
     Dates: end: 201311
  3. ZOPHREN [Concomitant]
     Indication: PRODUCT USED FOR UNKNOWN INDICATION
     Dosage: 8 MG, UNKNOWN
     Route: 065
  4. SOLUMEDROL [Concomitant]
     Indication: PRODUCT USED FOR UNKNOWN INDICATION
     Dosage: 120 MG, UNKNOWN
     Route: 065

REACTIONS (4)
  - Respiratory distress [Fatal]
  - Somnolence [Fatal]
  - Renal failure [Fatal]
  - Off label use [Unknown]
